FAERS Safety Report 6331430-9 (Version None)
Quarter: 2009Q3

REPORT INFORMATION
  Report Type: 
  Country: None (occurrence: None)
  Receive Date: 20090827
  Receipt Date: 20090821
  Transmission Date: 20100115
  Serious: Yes (Hospitalization, Other)
  Sender: FDA-Public Use
  Company Number: US-ABBOTT-08P-163-0463680-00

PATIENT
  Sex: Female
  Weight: 40.86 kg

DRUGS (3)
  1. HUMIRA [Suspect]
     Indication: CROHN'S DISEASE
     Route: 050
     Dates: start: 20070501, end: 20070501
  2. HUMIRA [Suspect]
     Route: 050
     Dates: end: 20070628
  3. HUMIRA [Suspect]
     Route: 050
     Dates: start: 20080310

REACTIONS (8)
  - DRUG DELIVERY SYSTEM MALFUNCTION [None]
  - INCISIONAL HERNIA [None]
  - INCORRECT DOSE ADMINISTERED [None]
  - INJECTION SITE HAEMATOMA [None]
  - INJECTION SITE HAEMORRHAGE [None]
  - INJECTION SITE SWELLING [None]
  - INTESTINAL RESECTION [None]
  - UMBILICAL HERNIA [None]
